FAERS Safety Report 5953308-2 (Version None)
Quarter: 2008Q4

REPORT INFORMATION
  Report Type: 
  Country: None (occurrence: None)
  Receive Date: 20081114
  Receipt Date: 20081112
  Transmission Date: 20090506
  Serious: Yes (Death)
  Sender: FDA-Public Use
  Company Number: PHEH2008US07225

PATIENT
  Age: 15 Year

DRUGS (1)
  1. EXJADE [Suspect]
     Dosage: UNK, UNK

REACTIONS (1)
  - DEATH [None]
